FAERS Safety Report 20434156 (Version 8)
Quarter: 2022Q3

REPORT INFORMATION
  Report Type: Report from Study
  Country: US (occurrence: US)
  Receive Date: 20220206
  Receipt Date: 20220630
  Transmission Date: 20221027
  Serious: Yes (Other)
  Sender: FDA-Public Use
  Company Number: US-NOVARTISPH-NVSC2022US022818

PATIENT
  Age: 72 Year
  Sex: Male

DRUGS (2)
  1. ENTRESTO [Suspect]
     Active Substance: SACUBITRIL\VALSARTAN
     Indication: Cardiac failure
     Dosage: 50 MG, BID, (24/26 MG)
     Route: 048
     Dates: start: 20211207
  2. OFEV [Concomitant]
     Active Substance: NINTEDANIB
     Indication: Lung disorder
     Dosage: UNK
     Route: 065

REACTIONS (15)
  - Pulmonary oedema [Unknown]
  - Scleroderma [Unknown]
  - Decreased appetite [Not Recovered/Not Resolved]
  - Dyspnoea [Not Recovered/Not Resolved]
  - Pulmonary fibrosis [Unknown]
  - Taste disorder [Not Recovered/Not Resolved]
  - Rhinorrhoea [Recovering/Resolving]
  - Nasopharyngitis [Unknown]
  - Skin ulcer [Recovering/Resolving]
  - Lymphadenopathy [Unknown]
  - Pollakiuria [Unknown]
  - Feeling cold [Recovering/Resolving]
  - Dysstasia [Unknown]
  - Cough [Recovered/Resolved]
  - Cough [Not Recovered/Not Resolved]

NARRATIVE: CASE EVENT DATE: 20211201
